FAERS Safety Report 17791497 (Version 1)
Quarter: 2020Q2

REPORT INFORMATION
  Report Type: Spontaneous
  Country: GB (occurrence: GB)
  Receive Date: 20200515
  Receipt Date: 20200515
  Transmission Date: 20200714
  Serious: Yes (Other)
  Sender: FDA-Public Use
  Company Number: GB-AMGEN-GBRSP2020077832

PATIENT
  Age: 29 Year
  Sex: Male

DRUGS (1)
  1. AMGEVITA [Suspect]
     Active Substance: ADALIMUMAB
     Indication: AXIAL SPONDYLOARTHRITIS
     Dosage: 40 MILLIGRAM, Q2WK
     Route: 058
     Dates: start: 20200131

REACTIONS (7)
  - Pain of skin [Unknown]
  - Sensitive skin [Unknown]
  - Crohn^s disease [Unknown]
  - Bruxism [Unknown]
  - Viral infection [Unknown]
  - Headache [Unknown]
  - Oral herpes [Unknown]
